FAERS Safety Report 16539933 (Version 1)
Quarter: 2019Q3

REPORT INFORMATION
  Report Type: Spontaneous
  Country: US (occurrence: US)
  Receive Date: 20190708
  Receipt Date: 20190708
  Transmission Date: 20191004
  Serious: No
  Sender: FDA-Public Use
  Company Number: US-PFIZER INC-2017346835

PATIENT
  Age: 68 Year
  Sex: Female
  Weight: 105 kg

DRUGS (15)
  1. BUTALBITAL APAP CAFFEINE [Concomitant]
     Active Substance: ACETAMINOPHEN\BUTALBITAL\CAFFEINE
     Indication: MIGRAINE
     Dosage: 1 DF, AS NEEDED, (EVERY 6 HOURS [BUTALBITAL 50 MG]/[CAFFEINE 40 MG]/[PARACETAMOL 325 MG])
     Route: 048
  2. GABAPENTIN. [Concomitant]
     Active Substance: GABAPENTIN
     Indication: PAIN
     Dosage: 600 MG, 2X/DAY
     Route: 048
  3. SIMVASTATIN. [Concomitant]
     Active Substance: SIMVASTATIN
     Indication: BLOOD CHOLESTEROL ABNORMAL
     Dosage: 40 MG, 1X/DAY, (AT NIGHT)
     Route: 048
  4. FLECTOR [Interacting]
     Active Substance: DICLOFENAC EPOLAMINE
     Dosage: UNK
     Route: 062
     Dates: start: 20180423
  5. METHOCARBAMOL. [Concomitant]
     Active Substance: METHOCARBAMOL
     Indication: MYALGIA
     Dosage: UNK
  6. FLECTOR [Suspect]
     Active Substance: DICLOFENAC EPOLAMINE
     Indication: BACK PAIN
     Dosage: 1 DF, 2X/DAY (PLACED EVERY 12 HOURS)
     Route: 062
  7. ETODOLAC. [Interacting]
     Active Substance: ETODOLAC
     Indication: PAIN
     Dosage: 400 MG, 2X/DAY
     Route: 048
  8. HYDROCODONE BITARTRATE AND ACETAMINOPHEN [Concomitant]
     Active Substance: ACETAMINOPHEN\HYDROCODONE BITARTRATE
     Indication: BACK PAIN
     Dosage: 1 DF, AS NEEDED (HYDROCODONE BITARTRATE 5 MG]/[ACETAMINOPHEN 325 MG)
     Route: 048
  9. ZOLOFT [Concomitant]
     Active Substance: SERTRALINE HYDROCHLORIDE
     Indication: DEPRESSION
     Dosage: 100 MG, 2X/DAY
  10. PANTOPRAZOLE 500 DR [Concomitant]
     Indication: GASTROOESOPHAGEAL REFLUX DISEASE
     Dosage: 40 MG, 1X/DAY
     Route: 048
  11. COENZYME Q10 [Concomitant]
     Active Substance: UBIDECARENONE
     Dosage: UNK
  12. FLECTOR [Interacting]
     Active Substance: DICLOFENAC EPOLAMINE
     Indication: PAIN
     Dosage: PUT ONE PATCH ON HER SPINE AND PUT ONE HALF OF A PATCH TO THE RIGHT OF THE SPINE
     Route: 062
  13. CLONAZEPAM. [Concomitant]
     Active Substance: CLONAZEPAM
     Indication: ANXIETY
     Dosage: 5 MG, 1X/DAY
     Route: 048
  14. TRIBENZOR [Concomitant]
     Active Substance: AMLODIPINE BESYLATE\HYDROCHLOROTHIAZIDE\OLMESARTAN MEDOXOMIL
     Indication: BLOOD PRESSURE ABNORMAL
     Dosage: 1 DF, 1X/DAY [AMLODIPINE BESILATE 10 MG]/[HYDROCHLOROTHIAZIDE 25 MG]/[OLMESARTAN MEDOXOMIL 40 MG]
     Route: 048
  15. LIDOCAINE. [Concomitant]
     Active Substance: LIDOCAINE
     Indication: BACK PAIN
     Dosage: UNK, AS NEEDED (ON FOR 12 HOURS AND OFF FOR 12 HOURS)
     Route: 062

REACTIONS (2)
  - Memory impairment [Unknown]
  - Labelled drug-drug interaction medication error [Unknown]
